FAERS Safety Report 5300323-8 (Version None)
Quarter: 2007Q2

REPORT INFORMATION
  Report Type: 
  Country: None (occurrence: None)
  Receive Date: 20070418
  Receipt Date: 20070411
  Transmission Date: 20071010
  Serious: Yes (Death, Other)
  Sender: FDA-Public Use
  Company Number: PHBS2007US06536

PATIENT
  Age: 50 Year
  Sex: Male

DRUGS (3)
  1. ZOLEDRONIC ACID [Suspect]
     Dates: start: 20000101
  2. THALOMID [Concomitant]
     Dosage: 100 MG/DAY
  3. THALOMID [Concomitant]
     Dosage: 300 MG/DAY

REACTIONS (7)
  - DISEASE PROGRESSION [None]
  - FACIAL PAIN [None]
  - OSTEONECROSIS [None]
  - PAIN IN JAW [None]
  - PNEUMONIA [None]
  - SUBDURAL HAEMATOMA [None]
  - SWELLING FACE [None]
